FAERS Safety Report 22333901 (Version 1)
Quarter: 2023Q2

REPORT INFORMATION
  Report Type: Spontaneous
  Country: US (occurrence: US)
  Receive Date: 20230517
  Receipt Date: 20230517
  Transmission Date: 20230721
  Serious: No
  Sender: FDA-Public Use
  Company Number: US-AIMMUNE THERAPEUTICS, INC.-2023AIMT00053

PATIENT

DRUGS (1)
  1. PALFORZIA [Suspect]
     Active Substance: PEANUT
     Indication: Food allergy
     Dosage: IDE (0.5MG-3MG), ONCE, ONLY DOSE PRIOR EVENTS
     Route: 048
     Dates: start: 20230116, end: 20230116

REACTIONS (5)
  - Nasopharyngitis [Unknown]
  - Oropharyngeal pain [Unknown]
  - Nasal congestion [Unknown]
  - Cough [Unknown]
  - Drug titration error [Recovered/Resolved]

NARRATIVE: CASE EVENT DATE: 20230116
